FAERS Safety Report 17337196 (Version 3)
Quarter: 2020Q3

REPORT INFORMATION
  Report Type: Spontaneous
  Country: JP (occurrence: JP)
  Receive Date: 20200129
  Receipt Date: 20200907
  Transmission Date: 20201102
  Serious: Yes (Hospitalization, Other)
  Sender: FDA-Public Use
  Company Number: JP-ROCHE-2529397

PATIENT
  Age: 5 Decade
  Sex: Male
  Weight: 76 kg

DRUGS (8)
  1. BASEN (JAPAN) [Concomitant]
     Dosage: DOSAGE IS UNCERTAIN.
     Route: 065
     Dates: start: 20160126
  2. URSO [Concomitant]
     Active Substance: URSODIOL
     Dosage: DOSAGE IS UNCERTAIN.
     Route: 065
     Dates: start: 20090611
  3. HEMLIBRA [Suspect]
     Active Substance: EMICIZUMAB-KXWH
     Indication: HAEMOPHILIA A WITHOUT INHIBITORS
     Route: 058
     Dates: start: 20190727
  4. NIFEDIPINE CR [Concomitant]
     Active Substance: NIFEDIPINE
     Dosage: DOSAGE IS UNCERTAIN.
     Route: 065
     Dates: start: 20090219
  5. ETIZOLAM [Concomitant]
     Active Substance: ETIZOLAM
     Dosage: DOSAGE IS UNCERTAIN.
     Route: 065
     Dates: start: 20190219
  6. NESINA [Concomitant]
     Active Substance: ALOGLIPTIN BENZOATE
     Dosage: DOSAGE IS UNCERTAIN.
     Route: 065
     Dates: start: 20141125
  7. HEMLIBRA [Suspect]
     Active Substance: EMICIZUMAB-KXWH
     Route: 058
     Dates: start: 20200824
  8. PREMINENT [Concomitant]
     Active Substance: HYDROCHLOROTHIAZIDE\LOSARTAN POTASSIUM
     Dosage: DOSAGE IS UNCERTAIN.
     Route: 065
     Dates: start: 20090813

REACTIONS (8)
  - Therapeutic response decreased [Unknown]
  - Injury [Unknown]
  - Arthralgia [Unknown]
  - Haematoma [Unknown]
  - Subarachnoid haematoma [Recovered/Resolved]
  - Thoracic vertebral fracture [Unknown]
  - Joint swelling [Unknown]
  - Haemothorax [Recovered/Resolved]

NARRATIVE: CASE EVENT DATE: 201910
